FAERS Safety Report 26013642 (Version 1)
Quarter: 2025Q4

REPORT INFORMATION
  Report Type: Report from Study
  Country: CO (occurrence: CO)
  Receive Date: 20251107
  Receipt Date: 20251107
  Transmission Date: 20260118
  Serious: Yes (Other)
  Sender: BIOGEN
  Company Number: CO-BIOGEN-2089345

PATIENT
  Age: 41 Year
  Sex: Female
  Weight: 69 kg

DRUGS (1)
  1. TYSABRI [Suspect]
     Active Substance: NATALIZUMAB
     Indication: Multiple sclerosis
     Dates: start: 20190909

REACTIONS (4)
  - Umbilical hernia [Recovered/Resolved]
  - Femoral hernia [Recovered/Resolved]
  - Anxiety [Not Recovered/Not Resolved]
  - Sleep apnoea syndrome [Not Recovered/Not Resolved]

NARRATIVE: CASE EVENT DATE: 20240101
